FAERS Safety Report 11719906 (Version 5)
Quarter: 2016Q2

REPORT INFORMATION
  Report Type: Report from Study
  Country: DE (occurrence: DE)
  Receive Date: 20151110
  Receipt Date: 20160602
  Transmission Date: 20160815
  Serious: Yes (Hospitalization)
  Sender: FDA-Public Use
  Company Number: DE-ROCHE-1655838

PATIENT
  Age: 73 Year
  Sex: Female
  Weight: 62 kg

DRUGS (9)
  1. RITUXIMAB [Suspect]
     Active Substance: RITUXIMAB
     Indication: B-CELL LYMPHOMA
     Route: 058
     Dates: start: 20151026
  2. PARACETAMOL [Suspect]
     Active Substance: ACETAMINOPHEN
     Indication: PREMEDICATION
     Route: 048
     Dates: start: 20150928
  3. METOPROLOL. [Concomitant]
     Active Substance: METOPROLOL
     Indication: HYPERTENSION
     Route: 048
     Dates: start: 20091007
  4. BENDAMUSTINE [Suspect]
     Active Substance: BENDAMUSTINE
     Indication: B-CELL LYMPHOMA
     Route: 042
     Dates: start: 20150929, end: 20160216
  5. DEXAMETHASON [Concomitant]
     Active Substance: DEXAMETHASONE
     Indication: PREMEDICATION
     Route: 048
     Dates: start: 20150929, end: 20160216
  6. PREDNISOLON [Concomitant]
     Active Substance: PREDNISOLONE
     Indication: PREMEDICATION
     Route: 042
     Dates: start: 20150928
  7. ONDANSETRON [Suspect]
     Active Substance: ONDANSETRON
     Indication: PREMEDICATION
     Route: 042
     Dates: start: 20150929, end: 20160216
  8. CIPROFLOXACIN. [Concomitant]
     Active Substance: CIPROFLOXACIN
     Route: 065
     Dates: end: 20151121
  9. TAVEGIL [Concomitant]
     Active Substance: CLEMASTINE FUMARATE
     Indication: PREMEDICATION
     Route: 042
     Dates: start: 20150928

REACTIONS (3)
  - Leukopenia [Not Recovered/Not Resolved]
  - Cough [Recovered/Resolved]
  - Orthostatic intolerance [Recovered/Resolved]

NARRATIVE: CASE EVENT DATE: 20151030
